FAERS Safety Report 4371205-3 (Version None)
Quarter: 2004Q2

REPORT INFORMATION
  Report Type: 
  Country: None (occurrence: None)
  Receive Date: 20040604
  Receipt Date: 20040527
  Transmission Date: 20050107
  Serious: Yes (Other)
  Sender: FDA-Public Use
  Company Number: GB-GLAXOSMITHKLINE-B0334140A

PATIENT

DRUGS (5)
  1. AUGMENTIN [Suspect]
     Indication: COUGH
     Route: 048
     Dates: start: 20040302, end: 20040316
  2. DOXAZOSIN [Concomitant]
     Indication: HYPERTENSION
     Dosage: 8MG PER DAY
     Route: 048
  3. LOSARTAN POTASSIUM [Concomitant]
     Indication: HYPERTENSION
     Dosage: 50MG PER DAY
     Route: 048
  4. BENDROFLUAZIDE [Concomitant]
     Indication: HYPERTENSION
     Dosage: 2.5MG PER DAY
     Route: 048
  5. DICLOFENAC [Concomitant]
     Indication: ARTHRITIS
     Dosage: 50MG PER DAY
     Route: 048

REACTIONS (2)
  - JAUNDICE CHOLESTATIC [None]
  - MALAISE [None]
